FAERS Safety Report 7829433-8 (Version None)
Quarter: 2011Q4

REPORT INFORMATION
  Report Type: 
  Country: None (occurrence: None)
  Receive Date: 20111020
  Receipt Date: 20111007
  Transmission Date: 20120403
  Serious: Yes (Other)
  Sender: FDA-Public Use
  Company Number: US-WATSON-2011-16145

PATIENT
  Sex: Female
  Weight: 111 kg

DRUGS (2)
  1. FENTANYL-100 [Suspect]
     Indication: BACK PAIN
     Dosage: 1 PATCH, Q72H
     Route: 062
     Dates: start: 20110917, end: 20111001
  2. FENTANYL-100 [Suspect]
     Dosage: 1 PATCH, Q72H
     Route: 062
     Dates: start: 20110701, end: 20110917

REACTIONS (11)
  - TREMOR [None]
  - FEELING ABNORMAL [None]
  - OVERDOSE [None]
  - BLOOD PRESSURE DECREASED [None]
  - FATIGUE [None]
  - RESPIRATORY RATE DECREASED [None]
  - APHASIA [None]
  - HEART RATE INCREASED [None]
  - APPLICATION SITE ERYTHEMA [None]
  - NERVOUSNESS [None]
  - APPLICATION SITE PAIN [None]
